FAERS Safety Report 7874797-2 (Version None)
Quarter: 2011Q4

REPORT INFORMATION
  Report Type: 
  Country: None (occurrence: None)
  Receive Date: 20111031
  Receipt Date: 20111019
  Transmission Date: 20120403
  Serious: Yes (Congenital Anomaly, Other)
  Sender: FDA-Public Use
  Company Number: FR-JNJFOC-20111010430

PATIENT

DRUGS (4)
  1. SUFENTANIL CITRATE [Suspect]
     Indication: MATERNAL EXPOSURE DURING PREGNANCY
     Dosage: MOTHER ROUTE-IV BLOUS
     Route: 064
  2. BUPIVACAINE HCL [Suspect]
     Indication: MATERNAL EXPOSURE DURING PREGNANCY
     Route: 064
  3. ECONAZOLE NITRATE [Suspect]
     Indication: MATERNAL EXPOSURE DURING PREGNANCY
     Route: 064
  4. CHLORHEXIDINE GLUCONATE [Suspect]
     Indication: MATERNAL EXPOSURE DURING PREGNANCY
     Route: 064

REACTIONS (3)
  - MATERNAL EXPOSURE DURING PREGNANCY [None]
  - MATERNAL DRUGS AFFECTING FOETUS [None]
  - FOETAL ARRHYTHMIA [None]
